FAERS Safety Report 9522659 (Version 1)
Quarter: 2013Q1

REPORT INFORMATION
  Report Type: Spontaneous
  Country: US (occurrence: None)
  Receive Date: 20130305
  Receipt Date: 20130305
  Transmission Date: 20140127
  Serious: Yes (Other)
  Sender: FDA-Public Use
  Company Number: 163-21880-12072813

PATIENT
  Age: 63 Year
  Sex: Male
  Weight: 122.47 kg

DRUGS (3)
  1. REVLIMID (LENALIDOMIDE) (25 MILLIGRAM, CAPSULES) [Suspect]
     Indication: PLASMA CELL MYELOMA
     Dosage: 25 MG,  14 IN 14 D,  PO
     Route: 048
     Dates: start: 20120611, end: 20120723
  2. VELCADE (BORTEZOMIB) (INJECTION) [Concomitant]
  3. DECADRON [Concomitant]

REACTIONS (2)
  - Blood potassium decreased [None]
  - Local swelling [None]
